FAERS Safety Report 11419802 (Version 2)
Quarter: 2015Q3

REPORT INFORMATION
  Report Type: Spontaneous
  Country: US (occurrence: US)
  Receive Date: 20150826
  Receipt Date: 20150916
  Transmission Date: 20151125
  Serious: Yes (Hospitalization)
  Sender: FDA-Public Use
  Company Number: US-009507513-1508USA009596

PATIENT
  Age: 64 Year
  Sex: Male

DRUGS (6)
  1. SINEMET [Suspect]
     Active Substance: CARBIDOPA\LEVODOPA
     Dosage: UNK
     Route: 048
  2. SINEMET [Suspect]
     Active Substance: CARBIDOPA\LEVODOPA
     Indication: PARKINSON^S DISEASE
     Dosage: 25/250 MG STRENGTH 1 TABLET, QID
     Route: 048
  3. SINEMET [Suspect]
     Active Substance: CARBIDOPA\LEVODOPA
     Dosage: REDUCED TO 25/100 MG STRENGTH, 2 TABLETS EACH DOSE, QID
     Route: 048
  4. SINEMET [Suspect]
     Active Substance: CARBIDOPA\LEVODOPA
     Dosage: REDUCED TO 25/100MG EACH DOSE
     Route: 048
  5. SINEMET [Suspect]
     Active Substance: CARBIDOPA\LEVODOPA
     Dosage: 1 TABLET OF 25/250MG STRENGTH, QID AND AN ADDITIONAL TABLET OF 25/100 MG STRENGTH ON EACH DOSE
     Route: 048
  6. SINEMET [Suspect]
     Active Substance: CARBIDOPA\LEVODOPA
     Dosage: RESUMED TO 25/250 MG EVERY 6 HOURS QID
     Route: 048

REACTIONS (1)
  - Respiratory dyskinesia [Unknown]
